FAERS Safety Report 25648919 (Version 1)
Quarter: 2025Q3

REPORT INFORMATION
  Report Type: Report from Study
  Country: US (occurrence: US)
  Receive Date: 20250806
  Receipt Date: 20250806
  Transmission Date: 20251021
  Serious: Yes (Hospitalization, Other)
  Sender: SUNOVION
  Company Number: US-SUMITOMO PHARMA SWITZERLAND GMBH-2024SPA000870

PATIENT
  Age: 61 Year
  Sex: Male

DRUGS (2)
  1. ORGOVYX [Suspect]
     Active Substance: RELUGOLIX
     Indication: Prostate cancer
     Route: 048
     Dates: start: 20240326, end: 20240326
  2. ORGOVYX [Suspect]
     Active Substance: RELUGOLIX
     Dosage: 120 MG, QD
     Route: 048
     Dates: start: 20240327

REACTIONS (8)
  - Heart rate irregular [Unknown]
  - Biliary tract operation [Unknown]
  - Post procedural infection [Unknown]
  - Nocturia [Unknown]
  - Sleep deficit [Unknown]
  - Thyroid hormones increased [Unknown]
  - Arthralgia [Unknown]
  - Product dose omission issue [Unknown]
